FAERS Safety Report 23804383 (Version 1)
Quarter: 2024Q2

REPORT INFORMATION
  Report Type: Spontaneous
  Country: SA (occurrence: SA)
  Receive Date: 20240501
  Receipt Date: 20240501
  Transmission Date: 20240716
  Serious: Yes (Other)
  Sender: FDA-Public Use
  Company Number: SA-KI BIOPHARMA, LLC-2024KAM00008

PATIENT
  Sex: Female

DRUGS (4)
  1. WINRHO SDF [Suspect]
     Active Substance: HUMAN RHO(D) IMMUNE GLOBULIN
     Indication: ABO incompatibility
     Dosage: 300 ?G (3RD PREGNANCY)
  2. WINRHO SDF [Suspect]
     Active Substance: HUMAN RHO(D) IMMUNE GLOBULIN
     Dosage: UNKNOWN (4TH PREGNANCY)
  3. WINRHO SDF [Suspect]
     Active Substance: HUMAN RHO(D) IMMUNE GLOBULIN
     Dosage: 100 ?G
     Route: 030
  4. WINRHO SDF [Suspect]
     Active Substance: HUMAN RHO(D) IMMUNE GLOBULIN
     Dosage: CUMULATIVE DOSE OF 120 ?G GIVING EACH DOSE AT 15- MINUTE INTERVALS (AFTER TERMINATION OF 6TH PREGNAN

REACTIONS (7)
  - Dysphagia [Recovered/Resolved]
  - Dysphonia [Recovered/Resolved]
  - Hypersensitivity [Recovered/Resolved]
  - Urticaria [Recovered/Resolved]
  - Vomiting [Recovered/Resolved]
  - Injection site swelling [Recovered/Resolved]
  - Abdominal pain upper [Recovered/Resolved]
